FAERS Safety Report 7539340-6 (Version None)
Quarter: 2011Q2

REPORT INFORMATION
  Report Type: 
  Country: None (occurrence: None)
  Receive Date: 20110610
  Receipt Date: 20110518
  Transmission Date: 20111010
  Serious: No
  Sender: FDA-Public Use
  Company Number: US-JNJFOC-20110408038

PATIENT
  Sex: Female
  Weight: 120.2 kg

DRUGS (5)
  1. INVEGA SUSTENNA [Suspect]
     Route: 030
     Dates: start: 20110401
  2. INVEGA SUSTENNA [Suspect]
     Route: 030
     Dates: start: 20110401
  3. INVEGA SUSTENNA [Suspect]
     Indication: BIPOLAR I DISORDER
     Route: 030
     Dates: start: 20110316, end: 20110401
  4. INVEGA SUSTENNA [Suspect]
     Indication: PSYCHOTIC DISORDER
     Route: 030
     Dates: start: 20110316, end: 20110401
  5. TRAZODONE HCL [Concomitant]
     Indication: INSOMNIA
     Dates: start: 20090401

REACTIONS (5)
  - INJECTION SITE WARMTH [None]
  - INJECTION SITE PRURITUS [None]
  - INJECTION SITE MASS [None]
  - INJECTION SITE ERYTHEMA [None]
  - OEDEMA PERIPHERAL [None]
